FAERS Safety Report 8444127-6 (Version None)
Quarter: 2012Q2

REPORT INFORMATION
  Report Type: 
  Country: None (occurrence: None)
  Receive Date: 20120611
  Receipt Date: 20120607
  Transmission Date: 20120825
  Serious: Yes (Other)
  Sender: FDA-Public Use
  Company Number: ADR-2012-00927

PATIENT
  Sex: Male

DRUGS (2)
  1. LIORESAL [Suspect]
     Indication: CEREBRAL PALSY
     Dosage: 99.92 MCG/DAY
  2. LIORESAL [Suspect]
     Indication: MUSCLE SPASTICITY
     Dosage: 99.92 MCG/DAY

REACTIONS (8)
  - IMPLANT SITE EFFUSION [None]
  - BURNING SENSATION [None]
  - THERAPEUTIC RESPONSE DECREASED [None]
  - FEELING COLD [None]
  - MOBILITY DECREASED [None]
  - MEDICAL DEVICE DISCOMFORT [None]
  - MUSCLE SPASMS [None]
  - DEVICE BREAKAGE [None]
